FAERS Safety Report 4689648-7 (Version None)
Quarter: 2005Q2

REPORT INFORMATION
  Report Type: 
  Country: None (occurrence: None)
  Receive Date: 20050607
  Receipt Date: 20040811
  Transmission Date: 20051028
  Serious: Yes (Hospitalization)
  Sender: FDA-Public Use
  Company Number: 2004_000065

PATIENT
  Age: 34 Year
  Sex: Female
  Weight: 45.8133 kg

DRUGS (7)
  1. DEPOCYT [Suspect]
     Indication: MENINGITIS
     Dosage: 50 MG; EVERY OTHER WEEK; INTRATECAL
     Route: 037
     Dates: start: 20040527, end: 20040803
  2. DEPOCYT [Suspect]
     Indication: NEOPLASM
     Dosage: 50 MG; EVERY OTHER WEEK; INTRATECAL
     Route: 037
     Dates: start: 20040527, end: 20040803
  3. GEMCITABINE [Concomitant]
  4. TRASTUZUMAB [Concomitant]
  5. ZOMETA [Concomitant]
  6. ZOFRAN [Concomitant]
  7. DECADRON [Concomitant]

REACTIONS (1)
  - DEHYDRATION [None]
